FAERS Safety Report 14203990 (Version 1)
Quarter: 2017Q4

REPORT INFORMATION
  Report Type: Spontaneous
  Country: IT (occurrence: IT)
  Receive Date: 20171120
  Receipt Date: 20171120
  Transmission Date: 20180321
  Serious: Yes (Life-Threatening, Hospitalization)
  Sender: FDA-Public Use
  Company Number: IT-INDICUS PHARMA-000500

PATIENT
  Age: 49 Year
  Sex: Female
  Weight: 90 kg

DRUGS (3)
  1. INSULIN GLARGINE [Suspect]
     Active Substance: INSULIN GLARGINE
  2. PIOGLITAZONE/PIOGLITAZONE HYDROCHLORIDE [Suspect]
     Active Substance: PIOGLITAZONE HYDROCHLORIDE
  3. METFORMIN [Suspect]
     Active Substance: METFORMIN HYDROCHLORIDE

REACTIONS (15)
  - Shock [Unknown]
  - Dehydration [None]
  - Hypoglycaemia [Recovering/Resolving]
  - Tachypnoea [None]
  - Continuous haemodiafiltration [None]
  - Blood glucose increased [None]
  - Suicide attempt [Unknown]
  - Metabolic acidosis [Recovering/Resolving]
  - Lactic acidosis [None]
  - Intentional overdose [Unknown]
  - Respiratory arrest [Unknown]
  - Vasodilatation [None]
  - Poisoning deliberate [None]
  - Unresponsive to stimuli [None]
  - Intentional overdose [None]
